FAERS Safety Report 25440358 (Version 1)
Quarter: 2025Q2

REPORT INFORMATION
  Report Type: Spontaneous
  Country: US (occurrence: None)
  Receive Date: 20250613
  Receipt Date: 20250613
  Transmission Date: 20250717
  Serious: Yes (Other)
  Sender: FDA-CTU
  Company Number: None

PATIENT
  Age: 82 Year
  Sex: Female
  Weight: 52.2 kg

DRUGS (9)
  1. ROMOSOZUMAB [Suspect]
     Active Substance: ROMOSOZUMAB
     Indication: Osteoporosis
     Route: 058
     Dates: start: 20240617, end: 20250127
  2. ACETAMINOPHEN [Concomitant]
     Active Substance: ACETAMINOPHEN
  3. AMLODIPINE [Concomitant]
     Active Substance: AMLODIPINE BESYLATE
  4. ASPIRIN [Concomitant]
     Active Substance: ASPIRIN
  5. ATORVASTATIN [Concomitant]
     Active Substance: ATORVASTATIN
  6. FLUTICASONE [Concomitant]
     Active Substance: FLUTICASONE
  7. PANTOPRAZOLE [Concomitant]
     Active Substance: PANTOPRAZOLE
  8. RISPERIDONE [Concomitant]
     Active Substance: RISPERIDONE
  9. SENNA [Concomitant]
     Active Substance: SENNOSIDES

REACTIONS (1)
  - Cerebellar stroke [None]

NARRATIVE: CASE EVENT DATE: 20250209
